FAERS Safety Report 20128336 (Version 5)
Quarter: 2022Q1

REPORT INFORMATION
  Report Type: Spontaneous
  Country: IE (occurrence: IE)
  Receive Date: 20211130
  Receipt Date: 20220214
  Transmission Date: 20220424
  Serious: Yes (Hospitalization, Other)
  Sender: FDA-Public Use
  Company Number: IE-DENTSPLY-2021SCDP000340

PATIENT
  Age: 10 Year
  Sex: Female

DRUGS (22)
  1. LIDOCAINE\PRILOCAINE [Suspect]
     Active Substance: LIDOCAINE\PRILOCAINE
     Indication: Product used for unknown indication
     Dosage: UNK EMLA
     Route: 065
  2. HUMAN IMMUNOGLOBULIN G [Suspect]
     Active Substance: HUMAN IMMUNOGLOBULIN G
     Indication: Immunodeficiency common variable
     Dosage: 4 GRAM SOLUTION FOR INFUSION
     Route: 065
     Dates: start: 20210518
  3. HUMAN IMMUNOGLOBULIN G [Suspect]
     Active Substance: HUMAN IMMUNOGLOBULIN G
     Dosage: 4 GRAM SOLUTION FOR INFUSION
     Route: 058
     Dates: start: 20210518
  4. HUMAN IMMUNOGLOBULIN G [Suspect]
     Active Substance: HUMAN IMMUNOGLOBULIN G
     Dosage: 2 GRAM SOLUTION FOR INFUSION
     Route: 065
     Dates: start: 20210518
  5. HUMAN IMMUNOGLOBULIN G [Suspect]
     Active Substance: HUMAN IMMUNOGLOBULIN G
     Dosage: 6 GRAM A WEEK SOLUTION FOR INFUSION
     Route: 058
     Dates: start: 20210518
  6. HUMAN IMMUNOGLOBULIN G [Suspect]
     Active Substance: HUMAN IMMUNOGLOBULIN G
     Dosage: 6 GRAM A WEEK SOLUTION FOR INFUSION
     Route: 042
     Dates: start: 20210518
  7. HUMAN IMMUNOGLOBULIN G [Suspect]
     Active Substance: HUMAN IMMUNOGLOBULIN G
     Dosage: 2 GRAM SOLUTION FOR INFUSION
     Route: 058
     Dates: start: 20210518
  8. HUMAN IMMUNOGLOBULIN G [Suspect]
     Active Substance: HUMAN IMMUNOGLOBULIN G
     Dosage: 2 GRAM SOLUTION FOR INFUSION
     Route: 058
     Dates: start: 20210518
  9. HUMAN IMMUNOGLOBULIN G [Suspect]
     Active Substance: HUMAN IMMUNOGLOBULIN G
     Dosage: 4 GRAM SOLUTION FOR INFUSION
     Route: 058
     Dates: start: 20210518
  10. HUMAN IMMUNOGLOBULIN G [Suspect]
     Active Substance: HUMAN IMMUNOGLOBULIN G
     Dosage: 6 GRAM A WEEK SOLUTION FOR INFUSION
     Route: 058
     Dates: start: 20210518
  11. HUMAN IMMUNOGLOBULIN G [Suspect]
     Active Substance: HUMAN IMMUNOGLOBULIN G
     Dosage: 6 GRAM A WEEK SOLUTION FOR INFUSION
     Route: 058
     Dates: start: 20210518
  12. SODIUM CHLORIDE [Concomitant]
     Active Substance: SODIUM CHLORIDE
     Indication: Product used for unknown indication
     Dosage: 0.9 % SODIUM CHLORIDE
     Route: 065
  13. CETIRIZINE [Concomitant]
     Active Substance: CETIRIZINE HYDROCHLORIDE
     Indication: Product used for unknown indication
     Dosage: UNK
     Route: 048
  14. VENTOLIN [Concomitant]
     Active Substance: ALBUTEROL SULFATE
     Indication: Product used for unknown indication
     Dosage: 1 DOSAGE FORM
     Route: 050
  15. VENTOLIN [Concomitant]
     Active Substance: ALBUTEROL SULFATE
     Dosage: 1 INTERNATIONAL UNIT
     Route: 050
  16. ACETAMINOPHEN [Concomitant]
     Active Substance: ACETAMINOPHEN
     Indication: Product used for unknown indication
     Dosage: UNK
     Route: 048
  17. MONTELUKAST [Concomitant]
     Active Substance: MONTELUKAST SODIUM
     Indication: Product used for unknown indication
     Dosage: 5 MILLIGRAM
     Route: 050
  18. AZITHROMYCIN [Concomitant]
     Active Substance: AZITHROMYCIN
     Indication: Product used for unknown indication
     Dosage: 1 DOSAGE FORM
     Route: 050
  19. AZITHROMYCIN [Concomitant]
     Active Substance: AZITHROMYCIN
     Dosage: 1 INTERNATIONAL UNIT
     Route: 050
  20. SYMBICORT [Concomitant]
     Active Substance: BUDESONIDE\FORMOTEROL FUMARATE DIHYDRATE
     Indication: Product used for unknown indication
     Dosage: 1 DOSAGE FORM
     Route: 050
  21. SYMBICORT [Concomitant]
     Active Substance: BUDESONIDE\FORMOTEROL FUMARATE DIHYDRATE
     Dosage: 1 INTERNATIONAL UNIT
     Route: 050
  22. PREDNISOLONE [Concomitant]
     Active Substance: PREDNISOLONE
     Indication: Product used for unknown indication
     Dosage: 40 MILLIGRAM, QD
     Route: 065

REACTIONS (32)
  - Infusion site discomfort [None]
  - Respiratory tract infection [None]
  - Fear of injection [None]
  - Infusion site erythema [None]
  - Muscle spasms [Recovered/Resolved]
  - Needle issue [Unknown]
  - Procedural complication [Recovered/Resolved]
  - Malaise [Recovered/Resolved]
  - Haemoptysis [None]
  - Pyrexia [Recovered/Resolved]
  - Drug ineffective [None]
  - Injection site swelling [None]
  - Tremor [None]
  - Inappropriate schedule of product administration [Unknown]
  - Incorrect drug administration rate [Unknown]
  - Back pain [None]
  - Oxygen saturation decreased [None]
  - Infusion related reaction [None]
  - Product use complaint [None]
  - Cough [None]
  - Erythema [None]
  - Vomiting [Unknown]
  - Infusion site haemorrhage [None]
  - Oropharyngeal pain [Unknown]
  - Rhinorrhoea [Unknown]
  - Infusion site pain [None]
  - Product administration error [Unknown]
  - Lower respiratory tract infection [None]
  - Nasopharyngitis [Recovered/Resolved]
  - Fatigue [Recovered/Resolved]
  - Dizziness [Recovered/Resolved]
  - Headache [Recovered/Resolved]

NARRATIVE: CASE EVENT DATE: 20210518
